FAERS Safety Report 9619512 (Version 1)
Quarter: 2013Q4

REPORT INFORMATION
  Report Type: Spontaneous
  Country: US (occurrence: US)
  Receive Date: 20131014
  Receipt Date: 20131014
  Transmission Date: 20140711
  Serious: No
  Sender: FDA-Public Use
  Company Number: US-BAYER-2013-124044

PATIENT
  Sex: Female

DRUGS (2)
  1. AVELOX [Suspect]
     Indication: BACTERIAL INFECTION
     Dosage: 400 MG, QD
     Route: 048
     Dates: start: 20131003
  2. PREDNISOLONE [Concomitant]
     Dosage: UNK

REACTIONS (1)
  - Abdominal discomfort [None]
